FAERS Safety Report 6971062-2 (Version None)
Quarter: 2010Q3

REPORT INFORMATION
  Report Type: 
  Country: None (occurrence: None)
  Receive Date: 20100908
  Receipt Date: 20100827
  Transmission Date: 20110219
  Serious: Yes (Other)
  Sender: FDA-Public Use
  Company Number: CN-PFIZER INC-2010108469

PATIENT
  Age: 30 Year
  Sex: Male

DRUGS (2)
  1. ZOLOFT [Suspect]
     Indication: INSOMNIA
     Dosage: 1 TABLET DAILY
     Route: 048
  2. ZOLOFT [Suspect]
     Indication: PREMATURE EJACULATION

REACTIONS (4)
  - DEJA VU [None]
  - HALLUCINATION [None]
  - PALPITATIONS [None]
  - PARAESTHESIA [None]
